FAERS Safety Report 9855085 (Version 1)
Quarter: 2014Q1

REPORT INFORMATION
  Report Type: Spontaneous
  Country: FR (occurrence: FR)
  Receive Date: 20140130
  Receipt Date: 20140130
  Transmission Date: 20141002
  Serious: Yes (Death)
  Sender: FDA-Public Use
  Company Number: FR-B.I. PHARMACEUTICALS,INC./RIDGEFIELD-2014-BI-03688FF

PATIENT
  Age: 86 Year
  Sex: Male

DRUGS (4)
  1. PRADAXA [Suspect]
     Indication: ISCHAEMIC STROKE
     Dosage: 220 MG
     Route: 048
     Dates: start: 201208, end: 20140102
  2. PRADAXA [Suspect]
     Indication: ATRIAL FIBRILLATION
  3. SOTALOL HYDROCHLORIDE [Concomitant]
     Route: 048
     Dates: end: 20140102
  4. TAHOR [Concomitant]
     Dosage: 10 MG
     Route: 048
     Dates: end: 20140102

REACTIONS (5)
  - Haemothorax [Fatal]
  - Haematoma [Fatal]
  - Anaemia [Fatal]
  - Shock haemorrhagic [Fatal]
  - Disseminated intravascular coagulation [Fatal]
